FAERS Safety Report 15207276 (Version 4)
Quarter: 2019Q3

REPORT INFORMATION
  Report Type: Spontaneous
  Country: JP (occurrence: JP)
  Receive Date: 20180727
  Receipt Date: 20190820
  Transmission Date: 20191004
  Serious: Yes (Death, Life-Threatening, Other)
  Sender: FDA-Public Use
  Company Number: JP-BRISTOL-MYERS SQUIBB COMPANY-BMS-2018-070045

PATIENT
  Age: 64 Year
  Sex: Male
  Weight: 72.3 kg

DRUGS (3)
  1. OPDIVO [Suspect]
     Active Substance: NIVOLUMAB
     Indication: NON-SMALL CELL LUNG CANCER
     Dosage: 3 MILLIGRAM/KILOGRAM
     Route: 041
     Dates: start: 20180622
  2. AMLODIPINE [Concomitant]
     Active Substance: AMLODIPINE BESYLATE
     Indication: HYPERTENSION
     Dosage: 5 MILLIGRAM, QD
     Route: 065
  3. ISCOTIN [Suspect]
     Active Substance: ISONIAZID
     Indication: TUBERCULOSIS
     Dosage: 100 MILLIGRAM, Q8H
     Route: 065
     Dates: start: 20180718, end: 20180827

REACTIONS (4)
  - Drug-induced liver injury [Fatal]
  - Interstitial lung disease [Fatal]
  - Malignant neoplasm progression [Fatal]
  - Tuberculosis [Fatal]

NARRATIVE: CASE EVENT DATE: 20180713
